FAERS Safety Report 25917338 (Version 2)
Quarter: 2025Q4

REPORT INFORMATION
  Report Type: Spontaneous
  Country: JP (occurrence: JP)
  Receive Date: 20251014
  Receipt Date: 20251103
  Transmission Date: 20260117
  Serious: Yes (Death)
  Sender: MERCK SHARP & DOHME LLC
  Company Number: JP-009507513-2338214

PATIENT
  Age: 78 Year
  Sex: Male

DRUGS (4)
  1. KEYTRUDA [Suspect]
     Active Substance: PEMBROLIZUMAB
     Indication: Gastric cancer
     Route: 041
     Dates: start: 202507, end: 202508
  2. TS-1 [Suspect]
     Active Substance: GIMERACIL\OTERACIL POTASSIUM\TEGAFUR
     Indication: Gastric cancer
     Dosage: 1 CYCLE OF 14 DAYS
     Route: 048
     Dates: start: 202507, end: 202508
  3. TRASTUZUMAB [Suspect]
     Active Substance: TRASTUZUMAB
     Indication: Gastric cancer
     Dosage: TIME INTERVAL: 0.33333333 WEEKS: 6 MG/KG FROM THE SECOND DOSE ONWARD
     Route: 041
     Dates: start: 202507, end: 202508
  4. OXALIPLATIN [Suspect]
     Active Substance: OXALIPLATIN
     Indication: Gastric cancer
     Dosage: TIME INTERVAL: 0.33333333 WEEKS
     Route: 041
     Dates: start: 202507, end: 202508

REACTIONS (3)
  - Death [Fatal]
  - Fatigue [Unknown]
  - Haemoglobin decreased [Unknown]

NARRATIVE: CASE EVENT DATE: 20250101
